FAERS Safety Report 4819966-0 (Version None)
Quarter: 2005Q4

REPORT INFORMATION
  Report Type: 
  Country: None (occurrence: None)
  Receive Date: 20051102
  Receipt Date: 20051020
  Transmission Date: 20060501
  Serious: Yes (Life-Threatening, Hospitalization, Other)
  Sender: FDA-Public Use
  Company Number: 2002057418

PATIENT
  Age: 67 Year
  Sex: Male

DRUGS (4)
  1. LIPITOR [Suspect]
     Indication: HYPERCHOLESTEROLAEMIA
     Dosage: 10 MG (1 D), ORAL
     Route: 048
  2. ASPIRIN [Concomitant]
  3. RANITIDINE HCL [Concomitant]
  4. ATENOLOL [Concomitant]

REACTIONS (15)
  - ABDOMINAL DISTENSION [None]
  - ABDOMINAL PAIN [None]
  - ACTINIC KERATOSIS [None]
  - ANGIONEUROTIC OEDEMA [None]
  - CHOLECYSTITIS [None]
  - DYSPNOEA [None]
  - EOSINOPHILIA [None]
  - FALL [None]
  - HYPERSENSITIVITY [None]
  - HYPOTENSION [None]
  - LETHARGY [None]
  - MALAISE [None]
  - SEPSIS [None]
  - URINARY TRACT INFECTION [None]
  - WHITE BLOOD CELL COUNT INCREASED [None]
